FAERS Safety Report 19269317 (Version 1)
Quarter: 2021Q2

REPORT INFORMATION
  Report Type: Spontaneous
  Country: BR (occurrence: BR)
  Receive Date: 20210517
  Receipt Date: 20210517
  Transmission Date: 20210717
  Serious: Yes (Other)
  Sender: FDA-Public Use
  Company Number: BR-BAXTER-2021BAX010822

PATIENT
  Age: 79 Year
  Sex: Female
  Weight: 65.5 kg

DRUGS (21)
  1. FAULDVINCRI [Suspect]
     Active Substance: VINCRISTINE SULFATE
     Indication: B-CELL LYMPHOMA
     Dosage: R?CHOP REGIMEN, VINCRISTINE 1 MG + SODIUM CHLORIDE SERUM 50 ML, INFUSION TIME ON BOLUS
     Route: 042
     Dates: start: 20210409
  2. ACYCLOVIR. [Concomitant]
     Active Substance: ACYCLOVIR
     Indication: PRODUCT USED FOR UNKNOWN INDICATION
     Route: 065
  3. DIPHENHYDRAMINE. [Concomitant]
     Active Substance: DIPHENHYDRAMINE
     Indication: CHEMOTHERAPY SIDE EFFECT PROPHYLAXIS
     Route: 065
  4. CLORETO DE S?DIO ? BAXTER [Suspect]
     Active Substance: SODIUM CHLORIDE
     Indication: MEDICATION DILUTION
     Dosage: R?CHOP REGIMEN, GENUXAL (200MG+1G)(TOTAL DOSE:1282.5MG) +SODIUM CHLORIDE 250ML, INFUSION TIME:30 MIN
     Route: 042
     Dates: start: 20210409
  5. LOSARTAN. [Concomitant]
     Active Substance: LOSARTAN
     Indication: PRODUCT USED FOR UNKNOWN INDICATION
     Route: 065
  6. BACTRIM [Concomitant]
     Active Substance: SULFAMETHOXAZOLE\TRIMETHOPRIM
     Indication: PRODUCT USED FOR UNKNOWN INDICATION
     Route: 065
  7. GENUXAL [Suspect]
     Active Substance: CYCLOPHOSPHAMIDE
     Indication: B-CELL LYMPHOMA
     Dosage: R?CHOP REGIMEN, GENUXAL (200MG+1G)(TOTAL DOSE:1282.5MG) +SODIUM CHLORIDE 250ML, INFUSION TIME:30 MIN
     Route: 042
     Dates: start: 20210409
  8. PREDNISONE. [Suspect]
     Active Substance: PREDNISONE
     Indication: B-CELL LYMPHOMA
     Dosage: R?CHOP REGIMEN
     Route: 065
     Dates: start: 20210409
  9. METFORMINE [Concomitant]
     Active Substance: METFORMIN HYDROCHLORIDE
     Indication: PRODUCT USED FOR UNKNOWN INDICATION
     Route: 065
  10. FAULDOXO [Suspect]
     Active Substance: DOXORUBICIN HYDROCHLORIDE
     Indication: B-CELL LYMPHOMA
     Dosage: R?CHOP REGIMEN, DOXORUBICIN 42.75 MG + DEXTROSE SERUM 50 ML, INFUSION TIME 15 MINS
     Route: 042
     Dates: start: 20210409
  11. PANTOPRAZOLE [Concomitant]
     Active Substance: PANTOPRAZOLE
     Indication: PRODUCT USED FOR UNKNOWN INDICATION
     Route: 065
  12. GRANISETRON [Concomitant]
     Active Substance: GRANISETRON
     Indication: CHEMOTHERAPY SIDE EFFECT PROPHYLAXIS
     Route: 065
  13. BAXTER GLICOSE 5% ? 500 ML [Suspect]
     Active Substance: DEXTROSE
     Indication: MEDICATION DILUTION
     Dosage: R?CHOP REGIMEN, DEXTROSE SERUM 50 ML + DOXORUBICIN 42.75 MG, INFUSION TIME 15 MINS
     Route: 042
     Dates: start: 20210409
  14. VIVAXIA [Suspect]
     Active Substance: RITUXIMAB
     Indication: B-CELL LYMPHOMA
     Dosage: R?CHOP REGIMEN, RITUXIMAB (STRENGTH: 500MG+100MG) (TOTAL DOSE: 630 MG) + SODIUM CHLORIDE 500 ML
     Route: 042
     Dates: start: 20210409
  15. CLORETO DE S?DIO ? BAXTER [Suspect]
     Active Substance: SODIUM CHLORIDE
     Dosage: R?CHOP REGIMEN, RITUXIMAB (STRENGTH: 500MG+100MG) (TOTAL DOSE: 630 MG) + SODIUM CHLORIDE 500 ML
     Route: 042
     Dates: start: 20210409
  16. VIVAXIA [Suspect]
     Active Substance: RITUXIMAB
     Dosage: R?CHOP REGIMEN, RITUXIMAB (STRENGTH: 500MG+100MG) (TOTAL DOSE: 630 MG) + SODIUM CHLORIDE 500 ML
     Route: 042
     Dates: start: 20210409
  17. DIAMICRON [Concomitant]
     Active Substance: GLICLAZIDE
     Indication: PRODUCT USED FOR UNKNOWN INDICATION
     Route: 065
  18. PARACETAMOL [Concomitant]
     Active Substance: ACETAMINOPHEN
     Indication: CHEMOTHERAPY SIDE EFFECT PROPHYLAXIS
     Route: 042
  19. DEXAMETHASONE. [Concomitant]
     Active Substance: DEXAMETHASONE
     Indication: CHEMOTHERAPY SIDE EFFECT PROPHYLAXIS
     Route: 065
  20. GENUXAL [Suspect]
     Active Substance: CYCLOPHOSPHAMIDE
     Indication: B-CELL LYMPHOMA
     Dosage: R?CHOP REGIMEN, GENUXAL (200MG+1G)(TOTAL DOSE:1282.5MG) +SODIUM CHLORIDE 250ML, INFUSION TIME:30 MIN
     Route: 042
     Dates: start: 20210409
  21. CLORETO DE S?DIO ? BAXTER [Suspect]
     Active Substance: SODIUM CHLORIDE
     Dosage: R?CHOP REGIMEN, SODIUM CHLORIDE SERUM 50 ML + VINCRISTINE 1 MG, INFUSION TIME ON BOLUS
     Route: 042
     Dates: start: 20210409

REACTIONS (4)
  - Anaemia [Recovering/Resolving]
  - Neutropenia [Recovering/Resolving]
  - Leukopenia [Recovering/Resolving]
  - Thrombocytopenia [Recovering/Resolving]

NARRATIVE: CASE EVENT DATE: 20210420
